FAERS Safety Report 12283408 (Version 11)
Quarter: 2018Q2

REPORT INFORMATION
  Report Type: Report from Study
  Country: US (occurrence: US)
  Receive Date: 20160419
  Receipt Date: 20180413
  Transmission Date: 20180711
  Serious: Yes (Death, Hospitalization)
  Sender: FDA-Public Use
  Company Number: US-ACTELION-A-NJ2016-134367

PATIENT
  Age: 37 Year
  Sex: Female
  Weight: 70.3 kg

DRUGS (9)
  1. ADCIRCA [Concomitant]
     Active Substance: TADALAFIL
  2. LASIX [Concomitant]
     Active Substance: FUROSEMIDE
     Dosage: 60 MG, BID
  3. VELETRI [Suspect]
     Active Substance: EPOPROSTENOL
     Indication: PULMONARY HYPERTENSION
     Dosage: 3 NG/KG, PER MIN
     Route: 042
     Dates: start: 20160401
  4. ELIQUIS [Concomitant]
     Active Substance: APIXABAN
  5. VELETRI [Suspect]
     Active Substance: EPOPROSTENOL
     Dosage: 20 NG/KG, PER MIN
     Route: 042
  6. OPSUMIT [Suspect]
     Active Substance: MACITENTAN
     Indication: PULMONARY HYPERTENSION
     Dosage: 10 MG, QD
     Route: 048
     Dates: start: 201511
  7. VELETRI [Suspect]
     Active Substance: EPOPROSTENOL
     Dosage: 25 NG/KG, PER MIN
     Route: 042
  8. SILDENAFIL. [Concomitant]
     Active Substance: SILDENAFIL
  9. OPSUMIT [Suspect]
     Active Substance: MACITENTAN
     Dosage: 10 MG, QD
     Route: 048
     Dates: start: 20151202

REACTIONS (33)
  - Pulmonary arterial hypertension [Fatal]
  - Ascites [Unknown]
  - Abdominal distension [Unknown]
  - Catheter management [Unknown]
  - Device alarm issue [Unknown]
  - Chest pain [Unknown]
  - Cough [Unknown]
  - Skin disorder [Not Recovered/Not Resolved]
  - Scab [Unknown]
  - Decreased appetite [Unknown]
  - Device occlusion [Unknown]
  - Catheter site rash [Unknown]
  - Headache [Unknown]
  - Myalgia [Recovered/Resolved]
  - Device related infection [Recovered/Resolved]
  - Staphylococcal bacteraemia [Not Recovered/Not Resolved]
  - Swelling face [Unknown]
  - Fluid overload [Not Recovered/Not Resolved]
  - Blood potassium decreased [Unknown]
  - Condition aggravated [Unknown]
  - Fluid retention [Unknown]
  - Right ventricular failure [Unknown]
  - Catheter site discharge [Unknown]
  - Abdominal pain [Unknown]
  - Dyspnoea [Unknown]
  - Catheter site pain [Unknown]
  - Catheter site inflammation [Unknown]
  - Pain in extremity [Unknown]
  - Hodgkin^s disease [Fatal]
  - Catheter site pruritus [Unknown]
  - Catheter site haemorrhage [Unknown]
  - Pain in jaw [Recovered/Resolved]
  - Nausea [Recovered/Resolved]

NARRATIVE: CASE EVENT DATE: 20160514
